FAERS Safety Report 24398140 (Version 1)
Quarter: 2024Q4

REPORT INFORMATION
  Report Type: Spontaneous
  Country: CA (occurrence: CA)
  Receive Date: 20241004
  Receipt Date: 20241004
  Transmission Date: 20250115
  Serious: Yes (Hospitalization, Other)
  Sender: MERCK
  Company Number: CA-009507513-2410CAN000362

PATIENT
  Age: 76 Year
  Sex: Female
  Weight: 54 kg

DRUGS (12)
  1. KEYTRUDA [Suspect]
     Active Substance: PEMBROLIZUMAB
     Indication: Non-small cell lung cancer metastatic
     Dosage: 2.0 MG/KG 1 EVERY 3 WEEKS
     Route: 041
  2. ACETAMINOPHEN [Concomitant]
     Active Substance: ACETAMINOPHEN
     Route: 065
  3. APIXABAN [Concomitant]
     Active Substance: APIXABAN
     Route: 065
  4. CALCIUM [Concomitant]
     Active Substance: CALCIUM
     Route: 065
  5. DOCUSATE SODIUM [Concomitant]
     Active Substance: DOCUSATE SODIUM
     Route: 065
  6. FLORINEF ACETATE [Concomitant]
     Active Substance: FLUDROCORTISONE ACETATE
     Route: 065
  7. LEVOTHYROXINE SODIUM [Concomitant]
     Active Substance: LEVOTHYROXINE SODIUM
     Route: 065
  8. PAMIDRONATE DISODIUM [Concomitant]
     Active Substance: PAMIDRONATE DISODIUM
     Route: 065
  9. PANTOPRAZOLE [Concomitant]
     Active Substance: PANTOPRAZOLE
     Route: 065
  10. PROCHLORPERAZINE [Concomitant]
     Active Substance: PROCHLORPERAZINE
     Route: 065
  11. SENNOSIDES [Concomitant]
     Active Substance: SENNOSIDES
     Route: 065
  12. VITAMINS NOS [Concomitant]
     Active Substance: VITAMINS
     Dosage: UNK
     Route: 065

REACTIONS (8)
  - Acute kidney injury [Recovered/Resolved]
  - Blood pressure decreased [Recovered/Resolved]
  - Diarrhoea [Recovered/Resolved]
  - Fluid replacement [Recovered/Resolved]
  - Gastritis [Recovered/Resolved]
  - Nausea [Recovered/Resolved]
  - Oesophagitis [Recovered/Resolved]
  - Vomiting [Recovered/Resolved]
